FAERS Safety Report 17570098 (Version 3)
Quarter: 2020Q4

REPORT INFORMATION
  Report Type: Report from Study
  Country: US (occurrence: US)
  Receive Date: 20200323
  Receipt Date: 20201111
  Transmission Date: 20210113
  Serious: Yes (Other)
  Sender: FDA-Public Use
  Company Number: NVSC2020US077129

PATIENT
  Age: 19 Year
  Sex: Female

DRUGS (3)
  1. KYMRIAH [Suspect]
     Active Substance: TISAGENLECLEUCEL
     Indication: B-CELL TYPE ACUTE LEUKAEMIA
     Dosage: UNK, ONCE/SINGLE
     Route: 041
     Dates: start: 20190325
  2. FLUDARABINE [Concomitant]
     Active Substance: FLUDARABINE PHOSPHATE
     Indication: CHEMOTHERAPY
     Dosage: UNK
     Route: 065
  3. CYCLOPHOSPHAMIDE. [Concomitant]
     Active Substance: CYCLOPHOSPHAMIDE
     Indication: CHEMOTHERAPY
     Dosage: UNK
     Route: 065

REACTIONS (8)
  - Minimal residual disease [Recovered/Resolved]
  - Lymphocyte count decreased [Unknown]
  - B-cell type acute leukaemia [Unknown]
  - Malignant neoplasm progression [Unknown]
  - White blood cell count decreased [Unknown]
  - Recurrent cancer [Unknown]
  - Platelet count decreased [Recovered/Resolved]
  - Neutrophil count decreased [Recovered/Resolved]
